FAERS Safety Report 7639625-9 (Version None)
Quarter: 2011Q3

REPORT INFORMATION
  Report Type: 
  Country: None (occurrence: None)
  Receive Date: 20110727
  Receipt Date: 20110712
  Transmission Date: 20111222
  Serious: Yes (Other)
  Sender: FDA-Public Use
  Company Number: US-VALEANT-2011VX002003

PATIENT
  Age: 64 Year
  Sex: Female

DRUGS (9)
  1. DEXAMETHASONE [Concomitant]
     Route: 065
     Dates: start: 20110101, end: 20110101
  2. HYDROCORTISONE [Concomitant]
     Route: 065
     Dates: start: 20110101, end: 20110101
  3. FLUOROURACIL [Suspect]
     Route: 065
     Dates: start: 20090701, end: 20100101
  4. LEUCOVORIN CALCIUM [Suspect]
     Route: 065
     Dates: start: 20110509
  5. LEUCOVORIN CALCIUM [Suspect]
     Route: 065
     Dates: start: 20090701, end: 20100101
  6. FLUOROURACIL [Suspect]
     Route: 065
     Dates: start: 20110509
  7. ELOXATIN [Suspect]
     Route: 041
     Dates: start: 20090701, end: 20100101
  8. ELOXATIN [Suspect]
     Route: 041
     Dates: start: 20110509, end: 20110501
  9. DIPHENHYDRAMINE HYDROCHLORIDE [Concomitant]
     Route: 065
     Dates: start: 20110101, end: 20110101

REACTIONS (4)
  - ABDOMINAL PAIN [None]
  - RASH [None]
  - PAIN [None]
  - HYPERSENSITIVITY [None]
